FAERS Safety Report 8580158 (Version 3)
Quarter: 2014Q1

REPORT INFORMATION
  Report Type: Spontaneous
  Country: US (occurrence: None)
  Receive Date: 20120323
  Receipt Date: 20140306
  Transmission Date: 20141002
  Serious: Yes (Other)
  Sender: FDA-Public Use
  Company Number: 163-21880-11041943

PATIENT
  Age: 69 Year
  Sex: Male
  Weight: 72.6 kg

DRUGS (6)
  1. REVLIMID [Suspect]
     Indication: PLASMA CELL MYELOMA
     Dosage: 15 MG, 1 IN 1 D, PO
     Route: 048
     Dates: start: 20080208, end: 201306
  2. ALLEGRA (FEXOFENADINE HYDROCHLORIDE) [Concomitant]
  3. PRILOSEC (OMEPRAZOLE) [Concomitant]
  4. CYCLOPHOSPHAMIDE [Concomitant]
  5. DEXAMETHASONE [Concomitant]
  6. FRAGMIN (HEPARIN-FRACTION, SODIUM SALF) [Concomitant]

REACTIONS (2)
  - Pulmonary embolism [None]
  - Thrombosis [None]
